FAERS Safety Report 13464132 (Version 1)
Quarter: 2017Q2

REPORT INFORMATION
  Report Type: Spontaneous
  Country: US (occurrence: US)
  Receive Date: 20170420
  Receipt Date: 20170420
  Transmission Date: 20170830
  Serious: Yes (Hospitalization, Other)
  Sender: FDA-Public Use
  Company Number: US-ROCHE-718697

PATIENT
  Age: 21 Year
  Sex: Female
  Weight: 63.5 kg

DRUGS (3)
  1. ACCUTANE [Suspect]
     Active Substance: ISOTRETINOIN
     Dosage: 40 MG TWICE DAILY ON MON,WED,FRI AND 40 MG DAILY ON ALTERNATE DAYS
     Route: 048
     Dates: start: 20021217, end: 200302
  2. ACCUTANE [Suspect]
     Active Substance: ISOTRETINOIN
     Dosage: 20 MG TWICE DAILY ON MON,WED,FRI AND 20 MG DAILY ON ALTERNATE DAYS
     Route: 048
  3. ACCUTANE [Suspect]
     Active Substance: ISOTRETINOIN
     Indication: ACNE
     Route: 048

REACTIONS (5)
  - Crohn^s disease [Unknown]
  - Dry skin [Recovering/Resolving]
  - Gastrointestinal injury [Unknown]
  - Inflammatory bowel disease [Unknown]
  - Aphthous ulcer [Unknown]

NARRATIVE: CASE EVENT DATE: 20020913
